FAERS Safety Report 5530045-X (Version None)
Quarter: 2007Q4

REPORT INFORMATION
  Report Type: 
  Country: None (occurrence: None)
  Receive Date: 20071121
  Receipt Date: 20071108
  Transmission Date: 20080405
  Serious: Yes (Hospitalization)
  Sender: FDA-Public Use
  Company Number: WSDF_00667

PATIENT
  Age: 72 Year
  Sex: Male
  Weight: 82.045 kg

DRUGS (7)
  1. WINRHO SDF [Suspect]
     Indication: IDIOPATHIC THROMBOCYTOPENIC PURPURA
     Dosage: 50 ?G/KG ONCE IV
     Route: 042
     Dates: start: 20070713, end: 20070713
  2. CETUXIMAB [Concomitant]
  3. BEVACIZUMAB [Concomitant]
  4. CARBOPLATIN [Concomitant]
  5. OMEPRAZOLE [Concomitant]
  6. FLOMAX [Concomitant]
  7. TAXOL [Concomitant]

REACTIONS (8)
  - ACUTE MYOCARDIAL INFARCTION [None]
  - CATHETER RELATED INFECTION [None]
  - CATHETER SITE OEDEMA [None]
  - CATHETER SITE PAIN [None]
  - HAEMOLYTIC ANAEMIA [None]
  - HYPOTENSION [None]
  - MYOCARDIAL INFARCTION [None]
  - SERRATIA SEPSIS [None]
